FAERS Safety Report 13597879 (Version 6)
Quarter: 2017Q3

REPORT INFORMATION
  Report Type: Spontaneous
  Country: KR (occurrence: KR)
  Receive Date: 20170531
  Receipt Date: 20170830
  Transmission Date: 20171127
  Serious: Yes (Hospitalization, Other)
  Sender: FDA-Public Use
  Company Number: KR-009507513-1702KOR008469

PATIENT
  Age: 57 Year
  Sex: Female
  Weight: 57.8 kg

DRUGS (79)
  1. ENDOXAN [Concomitant]
     Active Substance: CYCLOPHOSPHAMIDE
     Dosage: 1180 MG CYCLE 3, ONCE
     Route: 042
     Dates: start: 20170209, end: 20170209
  2. VINCRISTINE SULFATE. [Concomitant]
     Active Substance: VINCRISTINE SULFATE
     Dosage: (STRENGTH: 1 MG/ML 2ML) 2 MG, CYCLE 2, ONCE
     Route: 042
     Dates: start: 20170119, end: 20170119
  3. VINCRISTINE SULFATE. [Concomitant]
     Active Substance: VINCRISTINE SULFATE
     Dosage: (STRENGTH: 1 MG/ML 2ML) 2 MG, CYCLE 4, ONCE
     Route: 042
     Dates: start: 20170302, end: 20170302
  4. SOLONDO [Concomitant]
     Active Substance: PREDNISOLONE
     Dosage: 30 MG, BID
     Route: 048
     Dates: start: 20170119, end: 20170123
  5. JETIAM [Concomitant]
     Indication: ANTIBIOTIC PROPHYLAXIS
     Dosage: 1 G, ONCE
     Route: 042
     Dates: start: 20161221, end: 20161221
  6. TYLENOL EXTENDED RELIEF CAPLETS [Concomitant]
     Active Substance: ACETAMINOPHEN
     Dosage: 1 EXTENDED RELEASE (ER) TABLET, ONCE
     Route: 048
     Dates: start: 20170119, end: 20170119
  7. ASCORBIC ACID (+) CYANOCOBALAMIN (+) DEXPANTHENOL (+) NIACINAMIDE (+) [Concomitant]
     Dosage: 5 ML, QD
     Route: 042
     Dates: start: 20170301, end: 20170302
  8. EMEND (FOSAPREPITANT DIMEGLUMINE) [Suspect]
     Active Substance: FOSAPREPITANT DIMEGLUMINE
     Dosage: 150 MG, ONCE
     Route: 042
     Dates: start: 20170323, end: 20170323
  9. MABTHERA [Concomitant]
     Active Substance: RITUXIMAB
     Indication: LYMPHOMA
     Dosage: 600 MG, CYCLE 1, ONCE
     Route: 042
     Dates: start: 20161229, end: 20161229
  10. ENDOXAN [Concomitant]
     Active Substance: CYCLOPHOSPHAMIDE
     Dosage: 1180 MG CYCLE 4, ONCE
     Route: 042
     Dates: start: 20170302, end: 20170302
  11. DOXORUBIN [Concomitant]
     Active Substance: DOXORUBICIN
     Indication: LYMPHOMA
     Dosage: (STRENGTH: 0.2% 5ML) 75 MG, CYCLE 1 ONCE
     Route: 042
     Dates: start: 20161229, end: 20161229
  12. SOLONDO [Concomitant]
     Active Substance: PREDNISOLONE
     Dosage: 30 MG, BID
     Route: 048
     Dates: start: 20170323, end: 20170327
  13. ALOXI [Concomitant]
     Active Substance: PALONOSETRON HYDROCHLORIDE
     Indication: PROPHYLAXIS OF NAUSEA AND VOMITING
     Dosage: 0.25 MG, ONCE
     Route: 042
     Dates: start: 20161229, end: 20161229
  14. MIDAZOLAM [Concomitant]
     Active Substance: MIDAZOLAM HYDROCHLORIDE
     Indication: PREMEDICATION
     Dosage: 2 MG, ONCE
     Route: 042
     Dates: start: 20161228, end: 20161228
  15. TYLENOL EXTENDED RELIEF CAPLETS [Concomitant]
     Active Substance: ACETAMINOPHEN
     Indication: PROPHYLAXIS
     Dosage: 1 EXTENDED RELEASE (ER) TABLET, ONCE
     Route: 048
     Dates: start: 20161229, end: 20161229
  16. TYLENOL EXTENDED RELIEF CAPLETS [Concomitant]
     Active Substance: ACETAMINOPHEN
     Dosage: 1 EXTENDED RELEASE (ER) TABLET, ONCE
     Route: 048
     Dates: start: 20170302, end: 20170302
  17. ASCORBIC ACID (+) CYANOCOBALAMIN (+) DEXPANTHENOL (+) NIACINAMIDE (+) [Concomitant]
     Dosage: 5 ML, ONCE
     Route: 042
     Dates: start: 20170118, end: 20170118
  18. EMEND (FOSAPREPITANT DIMEGLUMINE) [Suspect]
     Active Substance: FOSAPREPITANT DIMEGLUMINE
     Dosage: 150 MG, ONCE
     Route: 042
     Dates: start: 20170209, end: 20170209
  19. EMEND (FOSAPREPITANT DIMEGLUMINE) [Suspect]
     Active Substance: FOSAPREPITANT DIMEGLUMINE
     Dosage: 150 MG, ONCE
     Route: 042
     Dates: start: 20170412, end: 20170412
  20. VINCRISTINE SULFATE. [Concomitant]
     Active Substance: VINCRISTINE SULFATE
     Dosage: (STRENGTH: 1 MG/ML 2ML) 2 MG, CYCLE 5, ONCE
     Route: 042
     Dates: start: 20170323, end: 20170323
  21. VINCRISTINE SULFATE. [Concomitant]
     Active Substance: VINCRISTINE SULFATE
     Dosage: (STRENGTH: 1 MG/ML 2ML) 2 MG, CYCLE 6, ONCE
     Route: 042
     Dates: start: 20170412, end: 20170412
  22. SOLONDO [Concomitant]
     Active Substance: PREDNISOLONE
     Indication: PROPHYLAXIS OF NAUSEA AND VOMITING
     Dosage: 40 MG, QD
     Route: 048
     Dates: start: 20161229, end: 20170102
  23. SOLONDO [Concomitant]
     Active Substance: PREDNISOLONE
     Dosage: 40 MG, QD
     Route: 048
     Dates: start: 20170119, end: 20170123
  24. ALOXI [Concomitant]
     Active Substance: PALONOSETRON HYDROCHLORIDE
     Dosage: 0.25 MG, ONCE
     Route: 042
     Dates: start: 20170119, end: 20170119
  25. DENOGAN [Concomitant]
     Active Substance: PROPACETAMOL HYDROCHLORIDE
     Indication: PAIN PROPHYLAXIS
     Dosage: 2 G, ONCE
     Route: 042
     Dates: start: 20161221, end: 20161221
  26. PENIRAMIN [Concomitant]
     Dosage: 4 MG, ONCE
     Route: 042
     Dates: start: 20170412, end: 20170412
  27. EMEND (FOSAPREPITANT DIMEGLUMINE) [Suspect]
     Active Substance: FOSAPREPITANT DIMEGLUMINE
     Indication: PROPHYLAXIS OF NAUSEA AND VOMITING
     Dosage: 150 MG, ONCE
     Route: 042
     Dates: start: 20161229, end: 20161229
  28. MABTHERA [Concomitant]
     Active Substance: RITUXIMAB
     Dosage: 600 MG, CYCLE 6, ONCE
     Route: 042
     Dates: start: 20170412, end: 20170412
  29. ENDOXAN [Concomitant]
     Active Substance: CYCLOPHOSPHAMIDE
     Indication: LYMPHOMA
     Dosage: 1180 MG CYCLE 1, ONCE
     Route: 042
     Dates: start: 20161229, end: 20161229
  30. DOXORUBIN [Concomitant]
     Active Substance: DOXORUBICIN
     Dosage: (STRENGTH: 0.2% 5ML) 75 MG, CYCLE 2 ONCE
     Route: 042
     Dates: start: 20170119, end: 20170119
  31. DOXORUBIN [Concomitant]
     Active Substance: DOXORUBICIN
     Dosage: (STRENGTH: 0.2% 5ML) 75 MG, CYCLE 5 ONCE
     Route: 042
     Dates: start: 20170323, end: 20170323
  32. DOXORUBIN [Concomitant]
     Active Substance: DOXORUBICIN
     Dosage: (STRENGTH: 0.2% 5ML) 75 MG, CYCLE 6 ONCE
     Route: 042
     Dates: start: 20170412, end: 20170412
  33. SOLONDO [Concomitant]
     Active Substance: PREDNISOLONE
     Dosage: 30 MG, BID
     Route: 048
     Dates: start: 20161229, end: 20170102
  34. SOLONDO [Concomitant]
     Active Substance: PREDNISOLONE
     Dosage: 30 MG, BID
     Route: 048
     Dates: start: 20170209, end: 20170213
  35. ALBIS [Concomitant]
     Active Substance: BISMUTH SUBCITRATE\RANITIDINE HYDROCHLORIDE\SUCRALFATE
     Indication: PROPHYLAXIS
     Dosage: 2 TABLETS, BID
     Route: 048
     Dates: start: 20161222
  36. LACTULOSE. [Concomitant]
     Active Substance: LACTULOSE
     Indication: CONSTIPATION PROPHYLAXIS
     Dosage: 15 ML, BID
     Route: 048
     Dates: start: 20161227
  37. MEPERIDINE HYDROCHLORIDE. [Concomitant]
     Active Substance: MEPERIDINE HYDROCHLORIDE
     Indication: PREMEDICATION
     Dosage: (STRENGTH: 50 MG/ML) 25 MG, ONCE
     Route: 042
     Dates: start: 20161228, end: 20161228
  38. MABTHERA [Concomitant]
     Active Substance: RITUXIMAB
     Dosage: 600 MG, CYCLE 2, ONCE
     Route: 042
     Dates: start: 20170119, end: 20170119
  39. MABTHERA [Concomitant]
     Active Substance: RITUXIMAB
     Dosage: 600 MG, CYCLE 5, ONCE
     Route: 042
     Dates: start: 20170323, end: 20170323
  40. ENDOXAN [Concomitant]
     Active Substance: CYCLOPHOSPHAMIDE
     Dosage: 1180 MG CYCLE 5, ONCE
     Route: 042
     Dates: start: 20170323, end: 20170323
  41. ENDOXAN [Concomitant]
     Active Substance: CYCLOPHOSPHAMIDE
     Dosage: 1180 MG CYCLE 6, ONCE
     Route: 042
     Dates: start: 20170412, end: 20170412
  42. VINCRISTINE SULFATE. [Concomitant]
     Active Substance: VINCRISTINE SULFATE
     Dosage: (STRENGTH: 1 MG/ML 2ML) 2 MG, CYCLE 3, ONCE
     Route: 042
     Dates: start: 20170209, end: 20170209
  43. SOLONDO [Concomitant]
     Active Substance: PREDNISOLONE
     Dosage: 40 MG, QD
     Route: 048
     Dates: start: 20170209, end: 20170213
  44. SOLONDO [Concomitant]
     Active Substance: PREDNISOLONE
     Dosage: 30 MG, BID
     Route: 048
     Dates: start: 20170412, end: 20170416
  45. ALOXI [Concomitant]
     Active Substance: PALONOSETRON HYDROCHLORIDE
     Dosage: 0.25 MG, ONCE
     Route: 042
     Dates: start: 20170412, end: 20170412
  46. NEXIUM [Concomitant]
     Active Substance: ESOMEPRAZOLE MAGNESIUM
     Indication: PROPHYLAXIS
     Dosage: 1 TABLET, QD
     Route: 048
     Dates: start: 20161229
  47. PENIRAMIN [Concomitant]
     Indication: PROPHYLAXIS
     Dosage: 4 MG, ONCE
     Route: 042
     Dates: start: 20161229, end: 20161229
  48. PENIRAMIN [Concomitant]
     Dosage: 4 MG, ONCE
     Route: 042
     Dates: start: 20170119, end: 20170119
  49. PENIRAMIN [Concomitant]
     Dosage: 4 MG, ONCE
     Route: 042
     Dates: start: 20170302, end: 20170302
  50. SOLONDO [Concomitant]
     Active Substance: PREDNISOLONE
     Dosage: 40 MG, QD
     Route: 048
     Dates: start: 20170323, end: 20170327
  51. STOGAR [Concomitant]
     Active Substance: LAFUTIDINE
     Indication: PROPHYLAXIS
     Dosage: 1 TABLET, BID
     Route: 048
     Dates: start: 20161221, end: 20161226
  52. TYLENOL EXTENDED RELIEF CAPLETS [Concomitant]
     Active Substance: ACETAMINOPHEN
     Dosage: 1 EXTENDED RELEASE (ER) TABLET, ONCE
     Route: 048
     Dates: start: 20170323, end: 20170323
  53. TYLENOL EXTENDED RELIEF CAPLETS [Concomitant]
     Active Substance: ACETAMINOPHEN
     Dosage: 1 EXTENDED RELEASE (ER) TABLET, ONCE
     Route: 048
     Dates: start: 20170412, end: 20170412
  54. ASCORBIC ACID (+) CYANOCOBALAMIN (+) DEXPANTHENOL (+) NIACINAMIDE (+) [Concomitant]
     Dosage: 5 ML, ONCE
     Route: 042
     Dates: start: 20170313, end: 20170313
  55. ASCORBIC ACID (+) CYANOCOBALAMIN (+) DEXPANTHENOL (+) NIACINAMIDE (+) [Concomitant]
     Dosage: 10 ML, ONCE
     Route: 042
     Dates: start: 20170314, end: 20170314
  56. ASCORBIC ACID (+) CYANOCOBALAMIN (+) DEXPANTHENOL (+) NIACINAMIDE (+) [Concomitant]
     Dosage: 5 ML, ONCE
     Route: 042
     Dates: start: 20170411, end: 20170411
  57. ENDOXAN [Concomitant]
     Active Substance: CYCLOPHOSPHAMIDE
     Dosage: 1180 MG CYCLE 2, ONCE
     Route: 042
     Dates: start: 20170119, end: 20170119
  58. DOXORUBIN [Concomitant]
     Active Substance: DOXORUBICIN
     Dosage: (STRENGTH: 0.2% 5ML) 75 MG, CYCLE 3 ONCE
     Route: 042
     Dates: start: 20170209, end: 20170209
  59. DOXORUBIN [Concomitant]
     Active Substance: DOXORUBICIN
     Dosage: (STRENGTH: 0.2% 5ML) 75 MG, CYCLE 4 ONCE
     Route: 042
     Dates: start: 20170302, end: 20170302
  60. VINCRISTINE SULFATE. [Concomitant]
     Active Substance: VINCRISTINE SULFATE
     Indication: LYMPHOMA
     Dosage: (STRENGTH: 1 MG/ML 2ML) 2 MG, CYCLE 1, ONCE
     Route: 042
     Dates: start: 20161229, end: 20161229
  61. SOLONDO [Concomitant]
     Active Substance: PREDNISOLONE
     Dosage: 30 MG, BID
     Route: 048
     Dates: start: 20170302, end: 20170306
  62. SOLONDO [Concomitant]
     Active Substance: PREDNISOLONE
     Dosage: 40 MG, QD
     Route: 048
     Dates: start: 20170412, end: 20170416
  63. ANYFEN [Concomitant]
     Indication: PAIN PROPHYLAXIS
     Dosage: 1 TABLET, TID
     Route: 048
     Dates: start: 20161221, end: 20161225
  64. TYLENOL EXTENDED RELIEF CAPLETS [Concomitant]
     Active Substance: ACETAMINOPHEN
     Dosage: 1 EXTENDED RELEASE (ER) TABLET, ONCE
     Route: 048
     Dates: start: 20170209, end: 20170209
  65. PENIRAMIN [Concomitant]
     Dosage: 4 MG, ONCE
     Route: 042
     Dates: start: 20170323, end: 20170323
  66. MACPERAN [Concomitant]
     Active Substance: METOCLOPRAMIDE HYDROCHLORIDE
     Dosage: 1 TABLET, TID
     Route: 048
     Dates: start: 20170120, end: 20170120
  67. ASCORBIC ACID (+) CYANOCOBALAMIN (+) DEXPANTHENOL (+) NIACINAMIDE (+) [Concomitant]
     Dosage: 5 ML, ONCE
     Route: 042
     Dates: start: 20170208, end: 20170208
  68. EMEND (FOSAPREPITANT DIMEGLUMINE) [Suspect]
     Active Substance: FOSAPREPITANT DIMEGLUMINE
     Dosage: 150 MG, ONCE
     Route: 042
     Dates: start: 20170119, end: 20170119
  69. EMEND (FOSAPREPITANT DIMEGLUMINE) [Suspect]
     Active Substance: FOSAPREPITANT DIMEGLUMINE
     Dosage: 150 MG, ONCE
     Route: 042
     Dates: start: 20170302, end: 20170302
  70. MABTHERA [Concomitant]
     Active Substance: RITUXIMAB
     Dosage: 600 MG, CYCLE 3, ONCE
     Route: 042
     Dates: start: 20170209, end: 20170209
  71. MABTHERA [Concomitant]
     Active Substance: RITUXIMAB
     Dosage: 600 MG, CYCLE 4, ONCE
     Route: 042
     Dates: start: 20170302, end: 20170302
  72. SOLONDO [Concomitant]
     Active Substance: PREDNISOLONE
     Dosage: 40 MG, QD
     Route: 048
     Dates: start: 20170302, end: 20170306
  73. ALOXI [Concomitant]
     Active Substance: PALONOSETRON HYDROCHLORIDE
     Dosage: 0.25 MG, ONCE
     Route: 042
     Dates: start: 20170209, end: 20170209
  74. ALOXI [Concomitant]
     Active Substance: PALONOSETRON HYDROCHLORIDE
     Dosage: 0.25 MG, ONCE
     Route: 042
     Dates: start: 20170302, end: 20170302
  75. ALOXI [Concomitant]
     Active Substance: PALONOSETRON HYDROCHLORIDE
     Dosage: 0.25 MG, ONCE
     Route: 042
     Dates: start: 20170323, end: 20170323
  76. LANSTON [Concomitant]
     Active Substance: LANSOPRAZOLE
     Indication: PROPHYLAXIS
     Dosage: 1 TABLET, QD
     Route: 048
     Dates: start: 20161222, end: 20161227
  77. PENIRAMIN [Concomitant]
     Dosage: 4 MG, ONCE
     Route: 042
     Dates: start: 20170209, end: 20170209
  78. MACPERAN [Concomitant]
     Active Substance: METOCLOPRAMIDE HYDROCHLORIDE
     Indication: PROPHYLAXIS OF NAUSEA AND VOMITING
     Dosage: 1 TABLET, TID
     Route: 048
     Dates: start: 20161230, end: 20161230
  79. ASCORBIC ACID (+) CYANOCOBALAMIN (+) DEXPANTHENOL (+) NIACINAMIDE (+) [Concomitant]
     Indication: VITAMIN SUPPLEMENTATION
     Dosage: 5 ML, ONCE
     Route: 042
     Dates: start: 20161230, end: 20161230

REACTIONS (9)
  - Myalgia [Recovered/Resolved]
  - Escherichia urinary tract infection [Recovered/Resolved]
  - Herpes simplex [Recovered/Resolved]
  - Dry eye [Not Recovered/Not Resolved]
  - Decreased appetite [Recovered/Resolved]
  - Cough [Recovered/Resolved]
  - Dyspepsia [Recovered/Resolved]
  - Nasopharyngitis [Recovered/Resolved]
  - Pyrexia [Recovered/Resolved]

NARRATIVE: CASE EVENT DATE: 20161230
